FAERS Safety Report 10486291 (Version 1)
Quarter: 2014Q4

REPORT INFORMATION
  Report Type: Report from Study
  Country: DE (occurrence: DE)
  Receive Date: 20141001
  Receipt Date: 20141001
  Transmission Date: 20150528
  Serious: Yes (Other)
  Sender: FDA-Public Use
  Company Number: DE-AMGEN-DEUSL2014075059

PATIENT
  Sex: Female
  Weight: 66 kg

DRUGS (1)
  1. PROLIA [Suspect]
     Active Substance: DENOSUMAB
     Indication: OSTEOPOROSIS POSTMENOPAUSAL
     Dosage: UNK
     Route: 065

REACTIONS (16)
  - Hypertension [Unknown]
  - Hypogonadism [Unknown]
  - Asthenia [Unknown]
  - Rheumatoid arthritis [Unknown]
  - Surgery [Unknown]
  - Osteogenesis imperfecta [Unknown]
  - Spinal deformity [Unknown]
  - Back pain [Unknown]
  - Dental operation [Unknown]
  - Dyspnoea [Unknown]
  - Mobility decreased [Unknown]
  - Bone density abnormal [Unknown]
  - Body height decreased [Unknown]
  - Activities of daily living impaired [Unknown]
  - Painful respiration [Unknown]
  - Premature menopause [Unknown]
